FAERS Safety Report 8187588 (Version 2)
Quarter: 2013Q4

REPORT INFORMATION
  Report Type: Spontaneous
  Country: US (occurrence: US)
  Receive Date: 20111018
  Receipt Date: 20131015
  Transmission Date: 20140711
  Serious: No
  Sender: FDA-Public Use
  Company Number: US-ASTRAZENECA-2011SE41283

PATIENT
  Age: 75 Year
  Sex: Female
  Weight: 104.3 kg

DRUGS (7)
  1. SYMBICORT [Suspect]
     Indication: ASTHMA
     Dosage: 80/4.5 MCG, 2 PUFFS BID
     Route: 055
  2. SYMBICORT [Suspect]
     Indication: ASTHMA
     Dosage: USES IT WHEN NEEDED
     Route: 055
  3. HIGH BLOOD PRESSURE MEDICATION [Concomitant]
     Indication: HYPERTENSION
     Dosage: HALF PILL DAILY
     Route: 048
  4. PROZAC [Concomitant]
     Indication: NERVOUS SYSTEM DISORDER
     Route: 048
  5. PROZAC [Concomitant]
     Indication: NERVOUS SYSTEM DISORDER
     Dosage: 2 - 40 MG DAILY
     Route: 048
     Dates: start: 2013
  6. MOBIC [Concomitant]
     Indication: ARTHRITIS
     Route: 048
  7. GABAPENTIN [Concomitant]
     Indication: HYPOAESTHESIA
     Route: 048

REACTIONS (8)
  - Asthma [Unknown]
  - Cardiac disorder [Unknown]
  - Asthma [Unknown]
  - Speech disorder [Unknown]
  - Weight increased [Unknown]
  - Hypoaesthesia [Unknown]
  - Blood pressure fluctuation [Unknown]
  - Intentional drug misuse [Unknown]
